FAERS Safety Report 5075999-3 (Version None)
Quarter: 2006Q3

REPORT INFORMATION
  Report Type: 
  Country: None (occurrence: None)
  Receive Date: 20060808
  Receipt Date: 20060808
  Transmission Date: 20061208
  Serious: Yes (Hospitalization)
  Sender: FDA-Public Use
  Company Number: None

PATIENT
  Age: 55 Year
  Sex: Male
  Weight: 104.9 kg

DRUGS (2)
  1. FUROSEMIDE [Suspect]
     Indication: HYPERTENSION
     Dosage: 40 MG TID PO [SEVERAL YEARS]
     Route: 048
  2. METOLAZONE [Suspect]
     Indication: HYPERTENSION
     Dosage: 2.5 MG PO QD [SEVERAL YEARS]
     Route: 048

REACTIONS (15)
  - BLOOD MAGNESIUM DECREASED [None]
  - CHRONIC OBSTRUCTIVE PULMONARY DISEASE [None]
  - COUGH [None]
  - DEHYDRATION [None]
  - DIARRHOEA [None]
  - DIZZINESS [None]
  - DYSPNOEA EXERTIONAL [None]
  - FEELING HOT [None]
  - GASTROENTERITIS [None]
  - GLOMERULONEPHRITIS MEMBRANOUS [None]
  - MUSCULOSKELETAL PAIN [None]
  - MYOCARDIAL INFARCTION [None]
  - NAUSEA [None]
  - PAIN IN EXTREMITY [None]
  - RENAL FAILURE ACUTE [None]
